FAERS Safety Report 18497061 (Version 1)
Quarter: 2020Q4

REPORT INFORMATION
  Report Type: Spontaneous
  Country: GB (occurrence: GB)
  Receive Date: 20201112
  Receipt Date: 20201112
  Transmission Date: 20210114
  Serious: Yes (Hospitalization, Disabling, Other)
  Sender: FDA-Public Use
  Company Number: GB-MYLANLABS-2020M1093368

PATIENT
  Age: 10 Year
  Sex: Female
  Weight: 29.2 kg

DRUGS (3)
  1. MELATONIN [Concomitant]
     Active Substance: MELATONIN
     Dosage: 6 MILLIGRAM (NOCTE) (MODIFIED-RELEASE)
  2. RISPERIDONE. [Suspect]
     Active Substance: RISPERIDONE
     Indication: AGGRESSION
     Dosage: 0.25 MILLIGRAM
     Route: 048
  3. MEDIKINET XL [Concomitant]
     Active Substance: METHYLPHENIDATE HYDROCHLORIDE
     Dosage: 20 MILLIGRAM, QD (15 MANE, 5 MG MIDDAY)

REACTIONS (4)
  - Extrapyramidal disorder [Recovered/Resolved]
  - Protrusion tongue [Unknown]
  - Aphasia [Unknown]
  - Hypokinesia [Unknown]

NARRATIVE: CASE EVENT DATE: 20200924
